FAERS Safety Report 16785552 (Version 4)
Quarter: 2019Q4

REPORT INFORMATION
  Report Type: Spontaneous
  Country: US (occurrence: US)
  Receive Date: 20190909
  Receipt Date: 20191112
  Transmission Date: 20200122
  Serious: No
  Sender: FDA-Public Use
  Company Number: US-PFIZER INC-2019363982

PATIENT
  Age: 65 Year
  Sex: Female

DRUGS (1)
  1. PREMPRO [Suspect]
     Active Substance: ESTROGENS, CONJUGATED\MEDROXYPROGESTERONE ACETATE
     Dosage: UNK (STRENGTH: 0.625 MG/2.5 MG)

REACTIONS (6)
  - Insomnia [Unknown]
  - Malaise [Unknown]
  - Nervousness [Unknown]
  - Product dispensing error [Unknown]
  - Intentional product misuse [Unknown]
  - Gait disturbance [Unknown]
